FAERS Safety Report 24044738 (Version 3)
Quarter: 2024Q3

REPORT INFORMATION
  Report Type: Spontaneous
  Country: JP (occurrence: JP)
  Receive Date: 20240703
  Receipt Date: 20240801
  Transmission Date: 20241017
  Serious: Yes (Other)
  Sender: BRISTOL MYERS SQUIBB
  Company Number: JP-BRISTOL-MYERS SQUIBB COMPANY-2024-106069

PATIENT
  Age: 83 Year
  Weight: 52 kg

DRUGS (1)
  1. ELIQUIS [Suspect]
     Active Substance: APIXABAN
     Indication: Deep vein thrombosis
     Route: 048
     Dates: start: 202310

REACTIONS (4)
  - Dementia [Unknown]
  - Procedural haemorrhage [Recovered/Resolved]
  - Injury [Unknown]
  - Fall [Unknown]
